FAERS Safety Report 20484895 (Version 1)
Quarter: 2022Q1

REPORT INFORMATION
  Report Type: Spontaneous
  Country: US (occurrence: US)
  Receive Date: 20220217
  Receipt Date: 20220217
  Transmission Date: 20220424
  Serious: No
  Sender: FDA-Public Use
  Company Number: US-SA-SAC20220211000955

PATIENT
  Age: 10 Year
  Sex: Male

DRUGS (1)
  1. DUPIXENT [Suspect]
     Active Substance: DUPILUMAB
     Dosage: 200MG/1.14ML, OTHER
     Route: 058
     Dates: start: 202112

REACTIONS (2)
  - Fear of injection [Unknown]
  - Device use issue [Unknown]

NARRATIVE: CASE EVENT DATE: 20211201
